FAERS Safety Report 13430763 (Version 1)
Quarter: 2017Q2

REPORT INFORMATION
  Report Type: Spontaneous
  Country: US (occurrence: US)
  Receive Date: 20170411
  Receipt Date: 20170411
  Transmission Date: 20170830
  Serious: Yes (Death)
  Sender: FDA-Public Use
  Company Number: None

PATIENT
  Age: 55 Year
  Sex: Male
  Weight: 117.6 kg

DRUGS (1)
  1. PROTAMINE SULFATE. [Suspect]
     Active Substance: PROTAMINE SULFATE
     Dates: start: 20160325

REACTIONS (4)
  - Gastrointestinal necrosis [None]
  - Intestinal ischaemia [None]
  - Hypotension [None]
  - Abdominal pain [None]
